FAERS Safety Report 18780336 (Version 1)
Quarter: 2021Q1

REPORT INFORMATION
  Report Type: Spontaneous
  Country: CA (occurrence: CA)
  Receive Date: 20210125
  Receipt Date: 20210125
  Transmission Date: 20210419
  Serious: Yes (Hospitalization, Other)
  Sender: FDA-Public Use
  Company Number: CA-MICRO LABS LIMITED-ML2021-00134

PATIENT
  Age: 53 Year
  Sex: Female
  Weight: 50 kg

DRUGS (4)
  1. NALTREXONE [Suspect]
     Active Substance: NALTREXONE
     Dosage: 750MG OF NALTREXONE 3 HOURS PRIOR TO ADMISSION.
  2. QUETIAPINE. [Suspect]
     Active Substance: QUETIAPINE
  3. ATORVASTATIN [Suspect]
     Active Substance: ATORVASTATIN
  4. VALPROIC ACID. [Suspect]
     Active Substance: VALPROIC ACID
     Dosage: INGESTED 15G OF VPA

REACTIONS (4)
  - Somnolence [Recovered/Resolved]
  - Depressed level of consciousness [Recovered/Resolved]
  - Intentional overdose [Recovered/Resolved]
  - Toxicity to various agents [Recovered/Resolved]
